FAERS Safety Report 5042974-4 (Version None)
Quarter: 2006Q2

REPORT INFORMATION
  Report Type: 
  Country: None (occurrence: None)
  Receive Date: 20060627
  Receipt Date: 20060616
  Transmission Date: 20061013
  Serious: Yes (Hospitalization)
  Sender: FDA-Public Use
  Company Number: 200612535GDS

PATIENT
  Age: 49 Year
  Sex: Female
  Weight: 52.4 kg

DRUGS (2)
  1. SORAFENIB [Suspect]
     Indication: HEPATIC NEOPLASM MALIGNANT
     Dosage: 400 MG BID ORAL ; 400 MG QD ORAL
     Route: 048
     Dates: start: 20060315, end: 20060416
  2. SORAFENIB [Suspect]
     Indication: HEPATIC NEOPLASM MALIGNANT
     Dosage: 400 MG BID ORAL ; 400 MG QD ORAL
     Route: 048
     Dates: start: 20060426, end: 20060525

REACTIONS (1)
  - DYSPNOEA [None]
